FAERS Safety Report 8407310-1 (Version None)
Quarter: 2012Q2

REPORT INFORMATION
  Report Type: 
  Country: None (occurrence: None)
  Receive Date: 20120604
  Receipt Date: 20120529
  Transmission Date: 20120825
  Serious: Yes (Death)
  Sender: FDA-Public Use
  Company Number: US-PFIZER INC-2012128995

PATIENT
  Sex: Male

DRUGS (1)
  1. SUTENT [Suspect]
     Indication: RENAL CANCER
     Dosage: 50 MG, (UNKNOWN FREQUENCY)
     Dates: start: 20120427, end: 20120427

REACTIONS (4)
  - NEOPLASM MALIGNANT [None]
  - LUNG NEOPLASM MALIGNANT [None]
  - RENAL CANCER [None]
  - DISEASE PROGRESSION [None]
